FAERS Safety Report 4459731-X (Version None)
Quarter: 2004Q3

REPORT INFORMATION
  Report Type: 
  Country: None (occurrence: None)
  Receive Date: 20040928
  Receipt Date: 20040722
  Transmission Date: 20050211
  Serious: Yes (Hospitalization)
  Sender: FDA-Public Use
  Company Number: PHBS2004CL09717

PATIENT
  Age: 42 Year
  Sex: Female

DRUGS (4)
  1. LAMISIL [Suspect]
     Indication: NAIL TINEA
     Dosage: 250 MG, QD
     Route: 048
  2. ANACIN [Concomitant]
  3. HERBAL PREPARATION [Suspect]
  4. HUMECTANT [Concomitant]

REACTIONS (12)
  - ARTHRALGIA [None]
  - DRY SKIN [None]
  - EXANTHEM [None]
  - GENERAL PHYSICAL HEALTH DETERIORATION [None]
  - HAEMATURIA [None]
  - LEUKOCYTOSIS [None]
  - PRURITUS [None]
  - RASH MACULO-PAPULAR [None]
  - RASH PUSTULAR [None]
  - RASH SCALY [None]
  - RED BLOOD CELL SEDIMENTATION RATE INCREASED [None]
  - SKIN DISCOLOURATION [None]
